FAERS Safety Report 4554431-X (Version None)
Quarter: 2004Q4

REPORT INFORMATION
  Report Type: 
  Country: None (occurrence: None)
  Receive Date: 20041222
  Receipt Date: 20031023
  Transmission Date: 20050328
  Serious: Yes (Hospitalization)
  Sender: FDA-Public Use
  Company Number: 2003174395US

PATIENT
  Age: 48 Year
  Sex: Female

DRUGS (1)
  1. MEDROL [Suspect]
     Indication: THROMBOCYTOPENIA
     Dosage: SEE IMAGE
     Route: 048
     Dates: start: 20030727

REACTIONS (1)
  - MENINGITIS VIRAL [None]
